FAERS Safety Report 24587719 (Version 1)
Quarter: 2024Q4

REPORT INFORMATION
  Report Type: Spontaneous
  Country: CN (occurrence: CN)
  Receive Date: 20241107
  Receipt Date: 20241107
  Transmission Date: 20250115
  Serious: Yes (Other)
  Sender: BAXTER
  Company Number: None

PATIENT
  Age: 67 Year
  Sex: Female
  Weight: 54 kg

DRUGS (8)
  1. MANNITOL [Suspect]
     Active Substance: MANNITOL
     Indication: Intervertebral disc disorder
     Dosage: (DOSAGE FORM: INJECTION SOLUTION) 125.00 ML, QD (ONCE DAILY)
     Route: 041
     Dates: start: 20241021, end: 20241021
  2. MANNITOL [Suspect]
     Active Substance: MANNITOL
     Indication: Lumbar radiculopathy
  3. METHYLCOBALAMIN [Suspect]
     Active Substance: METHYLCOBALAMIN
     Indication: Intervertebral disc disorder
     Dosage: 0.5 MG OF MECOBALAMIN INJECTION DILUTED IN 100 ML OF 0.9% SODIUM CHLORIDE, ONCE DAILY
     Route: 041
     Dates: start: 20241021, end: 20241021
  4. METHYLCOBALAMIN [Suspect]
     Active Substance: METHYLCOBALAMIN
     Indication: Lumbar radiculopathy
  5. KETOROLAC [Suspect]
     Active Substance: KETOROLAC TROMETHAMINE
     Indication: Intervertebral disc disorder
     Dosage: 30 MG OF KETOROLAC TROMETHAMINE INJECTION DILUTED IN 100 ML OF 0.9% SODIUM CHLORIDE, ONCE DAILY
     Route: 041
     Dates: start: 20241021, end: 20241021
  6. KETOROLAC [Suspect]
     Active Substance: KETOROLAC TROMETHAMINE
     Indication: Lumbar radiculopathy
  7. SODIUM CHLORIDE [Suspect]
     Active Substance: SODIUM CHLORIDE
     Dosage: (DOSAGE FORM: INJECTION SOLUTION) 100 ML OF 0.9% SODIUM CHLORIDE INJECTION USED TO DILUTE 0.5 MG OF
     Route: 041
     Dates: start: 20241021, end: 20241021
  8. SODIUM CHLORIDE [Suspect]
     Active Substance: SODIUM CHLORIDE
     Dosage: (DOSAGE FORM: INJECTION SOLUTION) 100 ML OF 0.9% SODIUM CHLORIDE INJECTION USED TO DILUTE 30 MG OF K
     Route: 041
     Dates: start: 20241021, end: 20241021

REACTIONS (5)
  - Abdominal pain upper [Recovered/Resolved]
  - Blood pressure increased [Recovered/Resolved]
  - Diarrhoea [Recovered/Resolved]
  - Nausea [Recovered/Resolved]
  - Vomiting [Recovered/Resolved]

NARRATIVE: CASE EVENT DATE: 20241021
